FAERS Safety Report 5754844-4 (Version None)
Quarter: 2008Q2

REPORT INFORMATION
  Report Type: 
  Country: None (occurrence: None)
  Receive Date: 20080527
  Receipt Date: 20080515
  Transmission Date: 20081010
  Serious: Yes (Other)
  Sender: FDA-Public Use
  Company Number: 2008010860

PATIENT
  Age: 58 Year
  Sex: Female

DRUGS (2)
  1. NICORETTE [Suspect]
     Dosage: 10 MG PATCH, TRANSDERMAL
     Route: 062
  2. NICORETTE [Suspect]
     Indication: SMOKING CESSATION THERAPY
     Dosage: 15 MG DAILY, TRANSDERMAL
     Route: 062
     Dates: start: 20080118

REACTIONS (2)
  - DEPRESSION [None]
  - INCORRECT DOSE ADMINISTERED [None]
